FAERS Safety Report 5366536-4 (Version None)
Quarter: 2007Q2

REPORT INFORMATION
  Report Type: 
  Country: None (occurrence: None)
  Receive Date: 20070622
  Receipt Date: 20070611
  Transmission Date: 20071010
  Serious: Yes (Other)
  Sender: FDA-Public Use
  Company Number: US-PFIZER INC-2007048130

PATIENT
  Sex: Female
  Weight: 83.636 kg

DRUGS (4)
  1. CHANTIX [Suspect]
     Indication: SMOKING CESSATION THERAPY
     Dosage: TEXT:EVERY DAY
     Dates: start: 20070501, end: 20070611
  2. ISONIAZID [Concomitant]
     Indication: TUBERCULOSIS
     Dosage: DAILY DOSE:300MG
  3. VITAMIN B6 [Concomitant]
     Indication: TUBERCULOSIS
  4. ALL OTHER THERAPEUTIC PRODUCTS [Concomitant]

REACTIONS (5)
  - GINGIVAL PAIN [None]
  - GLOSSODYNIA [None]
  - LIP SWELLING [None]
  - SWOLLEN TONGUE [None]
  - TONGUE DISORDER [None]
